FAERS Safety Report 19845986 (Version 3)
Quarter: 2022Q2

REPORT INFORMATION
  Report Type: Report from Study
  Country: US (occurrence: US)
  Receive Date: 20210917
  Receipt Date: 20220429
  Transmission Date: 20220721
  Serious: Yes (Hospitalization, Other)
  Sender: FDA-Public Use
  Company Number: US-SANOFI-00408338

PATIENT
  Age: 79 Year
  Sex: Male

DRUGS (2)
  1. DUPILUMAB [Suspect]
     Active Substance: DUPILUMAB
     Indication: Dermatitis atopic
     Dosage: 600 MG, 1X
     Route: 058
     Dates: start: 2020, end: 2020
  2. DUPILUMAB [Suspect]
     Active Substance: DUPILUMAB
     Dosage: 300 MG, QOW
     Route: 058
     Dates: start: 20201103, end: 20220427

REACTIONS (9)
  - Transient ischaemic attack [Recovering/Resolving]
  - Bell^s palsy [Recovered/Resolved]
  - International normalised ratio increased [Not Recovered/Not Resolved]
  - Memory impairment [Recovered/Resolved]
  - Depressed mood [Recovered/Resolved]
  - Eyelid ptosis [Recovered/Resolved]
  - Speech disorder [Recovered/Resolved]
  - Unevaluable event [Recovered/Resolved]
  - Therapy cessation [Unknown]

NARRATIVE: CASE EVENT DATE: 20201216
